FAERS Safety Report 7319965-3 (Version None)
Quarter: 2011Q1

REPORT INFORMATION
  Report Type: 
  Country: None (occurrence: None)
  Receive Date: 20110228
  Receipt Date: 20110221
  Transmission Date: 20110831
  Serious: Yes (Death)
  Sender: FDA-Public Use
  Company Number: PHHY2011US12114

PATIENT
  Age: 93 Year
  Sex: Female
  Weight: 51.71 kg

DRUGS (1)
  1. GLEEVEC [Suspect]
     Indication: LEUKOCYTOSIS
     Dosage: 200 MG, EVERY OTHER DAY
     Route: 048
     Dates: start: 20091213

REACTIONS (1)
  - DEATH [None]
